FAERS Safety Report 4410875-8 (Version None)
Quarter: 2004Q3

REPORT INFORMATION
  Report Type: 
  Country: None (occurrence: None)
  Receive Date: 20040728
  Receipt Date: 20040728
  Transmission Date: 20050211
  Serious: Yes (Hospitalization)
  Sender: FDA-Public Use
  Company Number: None

PATIENT
  Age: 79 Year
  Sex: Male
  Weight: 70.3075 kg

DRUGS (8)
  1. TAXOL [Suspect]
     Indication: NON-SMALL CELL LUNG CANCER
     Dosage: 260 IV Q 3 WEEKS
     Route: 042
     Dates: start: 20040520
  2. TAXOL [Suspect]
     Indication: NON-SMALL CELL LUNG CANCER
     Dosage: 260 IV Q 3 WEEKS
     Route: 042
     Dates: start: 20040609
  3. TAXOL [Suspect]
     Indication: NON-SMALL CELL LUNG CANCER
     Dosage: 260 IV Q 3 WEEKS
     Route: 042
     Dates: start: 20040630
  4. GEMZAR [Suspect]
     Indication: NON-SMALL CELL LUNG CANCER
     Dosage: 580MG IV Q 3 WEEKS
     Route: 042
     Dates: start: 20040520
  5. GEMZAR [Suspect]
     Indication: NON-SMALL CELL LUNG CANCER
     Dosage: 580MG IV Q 3 WEEKS
     Route: 042
     Dates: start: 20040609
  6. GEMZAR [Suspect]
     Indication: NON-SMALL CELL LUNG CANCER
     Dosage: 580MG IV Q 3 WEEKS
     Route: 042
     Dates: start: 20040630
  7. CHEST RADIATION [Concomitant]
  8. NEXIUM [Concomitant]

REACTIONS (1)
  - RADIATION PNEUMONITIS [None]
